FAERS Safety Report 22313429 (Version 1)
Quarter: 2023Q2

REPORT INFORMATION
  Report Type: Spontaneous
  Country: US (occurrence: US)
  Receive Date: 20230512
  Receipt Date: 20230512
  Transmission Date: 20230721
  Serious: No
  Sender: FDA-Public Use
  Company Number: US-LEO Pharma-351855

PATIENT
  Age: 82 Year
  Sex: Male

DRUGS (1)
  1. ADBRY [Suspect]
     Active Substance: TRALOKINUMAB-LDRM
     Indication: Dermatitis atopic
     Dosage: 600 MG (4 SYRINGES) FOR THE INITIAL DOSE THEN AT 300 MG (2 SYRINGES) EVERY TWO WEEKS
     Route: 058
     Dates: start: 202302

REACTIONS (1)
  - Urinary tract infection [Unknown]
